FAERS Safety Report 5389353-8 (Version None)
Quarter: 2007Q3

REPORT INFORMATION
  Report Type: 
  Country: None (occurrence: None)
  Receive Date: 20070713
  Receipt Date: 20070713
  Transmission Date: 20080115
  Serious: Yes (Death)
  Sender: FDA-Public Use
  Company Number: None

PATIENT
  Age: 62 Year
  Sex: Female

DRUGS (2)
  1. BLEOMYCIN [Suspect]
     Indication: CERVIX CARCINOMA
  2. PLATINUM [Suspect]
     Indication: CERVIX CARCINOMA

REACTIONS (12)
  - ASTHENIA [None]
  - CONFUSIONAL STATE [None]
  - CONSTIPATION [None]
  - DRUG TOXICITY [None]
  - GENERAL PHYSICAL HEALTH DETERIORATION [None]
  - HYDRONEPHROSIS [None]
  - OLIGURIA [None]
  - PAIN [None]
  - PANCYTOPENIA [None]
  - RENAL FAILURE ACUTE [None]
  - STOMATITIS [None]
  - VAGINAL HAEMORRHAGE [None]
